FAERS Safety Report 21091525 (Version 1)
Quarter: 2022Q3

REPORT INFORMATION
  Report Type: Spontaneous
  Country: US (occurrence: US)
  Receive Date: 20220717
  Receipt Date: 20220717
  Transmission Date: 20221026
  Serious: No
  Sender: FDA-Public Use
  Company Number: US-TEVA-2022-US-2049197

PATIENT
  Sex: Male

DRUGS (1)
  1. ALPRAZOLAM [Suspect]
     Active Substance: ALPRAZOLAM
     Indication: Product used for unknown indication
     Dosage: 1.5 MILLIGRAM DAILY; 0.5 MG
     Route: 065

REACTIONS (1)
  - False negative investigation result [Unknown]
